FAERS Safety Report 14801033 (Version 2)
Quarter: 2018Q2

REPORT INFORMATION
  Report Type: Spontaneous
  Country: DE (occurrence: DE)
  Receive Date: 20180424
  Receipt Date: 20180424
  Transmission Date: 20180711
  Serious: Yes (Life-Threatening, Hospitalization, Other)
  Sender: FDA-Public Use
  Company Number: PHHY2017DE165377

PATIENT
  Age: 19 Year
  Sex: Female

DRUGS (9)
  1. AZATHIOPRINE. [Suspect]
     Active Substance: AZATHIOPRINE
     Indication: CROHN^S DISEASE
     Dosage: 150 MG
     Route: 065
     Dates: end: 201403
  2. PREDNISOLONE. [Suspect]
     Active Substance: PREDNISOLONE
     Indication: CROHN^S DISEASE
     Dosage: UNK
     Route: 065
  3. SULFAMETHOXAZOLE [Concomitant]
     Active Substance: SULFAMETHOXAZOLE
     Indication: PROPHYLAXIS
     Dosage: UNK
     Route: 065
     Dates: start: 201402, end: 201403
  4. N-ACETYLCYSTEINE [Concomitant]
     Active Substance: ACETYLCYSTEINE
     Indication: PRODUCT USED FOR UNKNOWN INDICATION
     Dosage: UNK
     Route: 065
     Dates: start: 201403
  5. GP2017 [Suspect]
     Active Substance: INVESTIGATIONAL BIOSIMILARS
     Indication: IMMUNOSUPPRESSANT DRUG THERAPY
     Dosage: 80 MG
     Route: 065
     Dates: start: 2014, end: 201403
  6. GP2017 [Suspect]
     Active Substance: INVESTIGATIONAL BIOSIMILARS
     Indication: CROHN^S DISEASE
     Dosage: 160 MG
     Route: 065
     Dates: start: 201402
  7. AZATHIOPRINE. [Suspect]
     Active Substance: AZATHIOPRINE
     Indication: IMMUNOSUPPRESSANT DRUG THERAPY
  8. PREDNISOLONE. [Suspect]
     Active Substance: PREDNISOLONE
     Indication: IMMUNOSUPPRESSANT DRUG THERAPY
     Dosage: 25 MG
     Route: 065
  9. ACETAMINOPHEN. [Concomitant]
     Active Substance: ACETAMINOPHEN
     Indication: PRODUCT USED FOR UNKNOWN INDICATION
     Route: 065

REACTIONS (26)
  - Sepsis [Recovered/Resolved]
  - Hepatitis viral [Recovered/Resolved]
  - Pyrexia [Unknown]
  - Abdominal tenderness [Unknown]
  - Crohn^s disease [Unknown]
  - Hepatocellular injury [Recovered/Resolved]
  - Immunosuppression [Recovered/Resolved]
  - Transaminases increased [Unknown]
  - General physical health deterioration [Recovered/Resolved]
  - Malaise [Unknown]
  - Biopsy liver abnormal [Recovered/Resolved]
  - Pancytopenia [Unknown]
  - C-reactive protein increased [Unknown]
  - Herpes virus infection [Recovered/Resolved]
  - Coagulopathy [Recovered/Resolved]
  - Aspartate aminotransferase increased [Recovered/Resolved]
  - C-reactive protein increased [Recovered/Resolved]
  - International normalised ratio increased [Unknown]
  - Skin lesion [Recovered/Resolved]
  - Herpes simplex sepsis [Recovered/Resolved]
  - Prothrombin level abnormal [Recovered/Resolved]
  - Hepatic necrosis [Recovered/Resolved]
  - Alanine aminotransferase increased [Recovered/Resolved]
  - International normalised ratio decreased [Recovered/Resolved]
  - Herpes simplex hepatitis [Recovered/Resolved]
  - Abdominal pain [Unknown]

NARRATIVE: CASE EVENT DATE: 2014
